FAERS Safety Report 7464240-X (Version None)
Quarter: 2011Q2

REPORT INFORMATION
  Report Type: 
  Country: None (occurrence: None)
  Receive Date: 20110506
  Receipt Date: 20110502
  Transmission Date: 20111010
  Serious: Yes (Life-Threatening)
  Sender: FDA-Public Use
  Company Number: IT-ASTRAZENECA-2011SE25149

PATIENT
  Sex: Male

DRUGS (9)
  1. NORCURON [Suspect]
     Indication: GENERAL ANAESTHESIA
     Dosage: 10 MG POWDER FOR SOLUTION FOR INJECTION FOR INTRAVENOUS USE10 BOTTLES
     Route: 042
     Dates: start: 20110301, end: 20110301
  2. TRANEXAMIC ACID [Suspect]
     Indication: HAEMORRHAGE PROPHYLAXIS
     Dosage: 500 MG / 5 ML SOLUTION INJECTABLE  FOR INTRAMUSCULAR OR INTRAVENOUS USE, FOR ORAL OR LOCAL USE 5  V
     Route: 042
     Dates: start: 20110301, end: 20110301
  3. DIPRIVAN [Suspect]
     Indication: GENERAL ANAESTHESIA
     Dosage: 20 MG / ML EMULSION FOR INFUSION  1 SYRINGE PRE-FILLED 10 ML
     Route: 042
     Dates: start: 20110301, end: 20110301
  4. MORPHINE [Suspect]
     Indication: ANALGESIC THERAPY
     Dosage: 5 ML 1 VIAL 0.01 G
     Route: 042
     Dates: start: 20110301, end: 20110301
  5. TORADOL [Suspect]
     Indication: PERIOPERATIVE ANALGESIA
     Dosage: 30 MG/ ML SOLUTION FOR INJECTION 3 VIALS
     Route: 042
     Dates: start: 20110301, end: 20110301
  6. FENTANYL CITRATE [Suspect]
     Indication: GENERAL ANAESTHESIA
     Dosage: 0.1 MG / 2 ML SOLUTION INJECTABLE 5  VIAL 2ML
     Route: 042
     Dates: start: 20110301, end: 20110301
  7. ZOFRAN [Suspect]
     Indication: VOMITING
     Dosage: 4 MG / 2 ML SOLUTION INJECTABLE 1 VIAL  2 ML
     Route: 042
     Dates: start: 20110301, end: 20110301
  8. MEFOXIN [Suspect]
     Indication: ANTIBIOTIC PROPHYLAXIS
     Dosage: 1G / 2 ML POWDER AND SOLVENT FOR INJECTION SOLUTION FOR INTRAMUSCULAR USE 1 BOTTLE POWDER +1VIAL SO
     Route: 042
     Dates: start: 20110301, end: 20110301
  9. LIDOCAINE HCL [Suspect]
     Indication: LOCAL ANAESTHESIA
     Dosage: 2% 100 VIALS 10 ML
     Route: 042
     Dates: start: 20110301, end: 20110301

REACTIONS (1)
  - LARYNGEAL OEDEMA [None]
